FAERS Safety Report 26083977 (Version 2)
Quarter: 2025Q4

REPORT INFORMATION
  Report Type: Spontaneous
  Country: EU (occurrence: EU)
  Receive Date: 20251124
  Receipt Date: 20251203
  Transmission Date: 20260118
  Serious: No
  Sender: NOVARTIS
  Company Number: EU-002147023-NVSC2025FR156645

PATIENT
  Age: 29 Year
  Sex: Male

DRUGS (3)
  1. KESIMPTA [Suspect]
     Active Substance: OFATUMUMAB
     Indication: Multiple sclerosis
     Dosage: UNK (20)
     Route: 058
     Dates: start: 20250630, end: 20251027
  2. KESIMPTA [Suspect]
     Active Substance: OFATUMUMAB
     Dosage: UNK (20)
     Route: 058
     Dates: start: 20251027, end: 20251027
  3. KESIMPTA [Suspect]
     Active Substance: OFATUMUMAB
     Dosage: UNK (20)
     Route: 058
     Dates: start: 20250929, end: 20250929

REACTIONS (4)
  - Rash pruritic [Recovered/Resolved]
  - Injection site oedema [Recovered/Resolved]
  - Infection [Unknown]
  - Injection site swelling [Unknown]

NARRATIVE: CASE EVENT DATE: 20250101
